FAERS Safety Report 5568323-0 (Version None)
Quarter: 2007Q4

REPORT INFORMATION
  Report Type: 
  Country: None (occurrence: None)
  Receive Date: 20071218
  Receipt Date: 20071205
  Transmission Date: 20080405
  Serious: Yes (Other)
  Sender: FDA-Public Use
  Company Number: 165124USA

PATIENT
  Age: 55 Year
  Sex: Male

DRUGS (2)
  1. METHYLPREDNISOLONE SODIUM SUCCINATE [Suspect]
  2. TACROLIMUS [Suspect]

REACTIONS (7)
  - CHRONIC MYELOID LEUKAEMIA [None]
  - DIALYSIS [None]
  - LIVER TRANSPLANT [None]
  - REFRACTORY ANAEMIA [None]
  - RENAL FAILURE ACUTE [None]
  - SURGICAL PROCEDURE REPEATED [None]
  - WEIGHT DECREASED [None]
